FAERS Safety Report 25343757 (Version 1)
Quarter: 2025Q2

REPORT INFORMATION
  Report Type: Spontaneous
  Country: US (occurrence: None)
  Receive Date: 20250521
  Receipt Date: 20250521
  Transmission Date: 20250716
  Serious: Yes (Other)
  Sender: FDA-CTU
  Company Number: None

PATIENT
  Age: 45 Year
  Sex: Female
  Weight: 90 kg

DRUGS (1)
  1. CETIRIZINE HYDROCHLORIDE [Suspect]
     Active Substance: CETIRIZINE HYDROCHLORIDE
     Indication: Urticaria pressure
     Dosage: DAILY ORAL
     Route: 048

REACTIONS (4)
  - Pruritus [None]
  - Scratch [None]
  - Therapy interrupted [None]
  - Withdrawal syndrome [None]

NARRATIVE: CASE EVENT DATE: 20230601
